FAERS Safety Report 8378581-5 (Version None)
Quarter: 2012Q2

REPORT INFORMATION
  Report Type: 
  Country: None (occurrence: None)
  Receive Date: 20120522
  Receipt Date: 20110822
  Transmission Date: 20120825
  Serious: No
  Sender: FDA-Public Use
  Company Number: US-ASTRAZENECA-2011SE50537

PATIENT
  Age: 61 Year
  Sex: Male
  Weight: 97.5 kg

DRUGS (3)
  1. ZANTAC [Concomitant]
     Indication: OROPHARYNGEAL PAIN
     Route: 065
  2. SPIRIVA [Concomitant]
     Indication: CHRONIC OBSTRUCTIVE PULMONARY DISEASE
     Route: 065
  3. PRILOSEC [Suspect]
     Indication: GASTROOESOPHAGEAL REFLUX DISEASE
     Route: 048
     Dates: start: 20100901

REACTIONS (2)
  - OROPHARYNGEAL PAIN [None]
  - DRUG INEFFECTIVE [None]
